FAERS Safety Report 8461371-2 (Version None)
Quarter: 2012Q2

REPORT INFORMATION
  Report Type: 
  Country: None (occurrence: None)
  Receive Date: 20120625
  Receipt Date: 20120617
  Transmission Date: 20120825
  Serious: Yes (Other)
  Sender: FDA-Public Use
  Company Number: US-BAYER-2012-060376

PATIENT
  Sex: Female

DRUGS (1)
  1. MIRENA [Suspect]

REACTIONS (5)
  - BREAST SWELLING [None]
  - WEIGHT INCREASED [None]
  - ABDOMINAL DISTENSION [None]
  - MENTAL IMPAIRMENT [None]
  - ANXIETY [None]
